FAERS Safety Report 17454810 (Version 1)
Quarter: 2020Q1

REPORT INFORMATION
  Report Type: Spontaneous
  Country: DK (occurrence: DK)
  Receive Date: 20200225
  Receipt Date: 20200225
  Transmission Date: 20200409
  Serious: Yes (Hospitalization)
  Sender: FDA-Public Use
  Company Number: DK-B.I. PHARMACEUTICALS,INC./RIDGEFIELD-2020-12-009475

PATIENT
  Age: 61 Year
  Sex: Female
  Weight: 105 kg

DRUGS (8)
  1. SYNJARDY [Suspect]
     Active Substance: EMPAGLIFLOZIN\METFORMIN HYDROCHLORIDE
     Indication: TYPE 2 DIABETES MELLITUS
     Dosage: STYRKE: 12,5MG/1000MG
     Route: 048
     Dates: start: 201706, end: 20200130
  2. KALEORID [Concomitant]
     Active Substance: POTASSIUM CHLORIDE
     Indication: MINERAL SUPPLEMENTATION
     Dosage: STYRKE: 750 MG
     Route: 048
     Dates: start: 20190918, end: 202002
  3. BETOLVEX [CYANOCOBALAMIN-TANNIN COMPLEX] [Concomitant]
     Indication: VITAMIN SUPPLEMENTATION
     Dosage: STYRKE: 1 MG
     Route: 048
     Dates: start: 20180831
  4. LOSARSTAD [Concomitant]
     Indication: HYPERTENSION
     Dosage: STYRKE: 100 MG
     Route: 048
     Dates: start: 20181129, end: 202002
  5. SELEXID [MECILLINAM] [Concomitant]
     Active Substance: AMDINOCILLIN
     Indication: URINARY TRACT INFECTION
     Dosage: STYRKE: 400 MG
     Route: 048
     Dates: start: 20200127, end: 20200201
  6. CENTYL MITE MED KALIUMKLORID [Concomitant]
     Indication: HYPERTENSION
     Dosage: STYRKE: 1.25+573 MG
     Route: 048
     Dates: start: 20190522, end: 202002
  7. PANTOPRAZOLE [Concomitant]
     Active Substance: PANTOPRAZOLE
     Indication: GASTROOESOPHAGEAL REFLUX DISEASE
     Dosage: STYRKE: 20 MG
     Route: 048
     Dates: start: 20171108
  8. AMLODIPINE [Concomitant]
     Active Substance: AMLODIPINE BESYLATE
     Indication: HYPERTENSION
     Dosage: STYRKE: 5 MG
     Route: 048
     Dates: start: 20141208

REACTIONS (2)
  - Euglycaemic diabetic ketoacidosis [Recovered/Resolved]
  - Acetonaemia [Recovered/Resolved]

NARRATIVE: CASE EVENT DATE: 20200130
